FAERS Safety Report 9000589 (Version 5)
Quarter: 2013Q3

REPORT INFORMATION
  Report Type: Spontaneous
  Country: US (occurrence: US)
  Receive Date: 20130107
  Receipt Date: 20130905
  Transmission Date: 20140515
  Serious: No
  Sender: FDA-Public Use
  Company Number: US-PFIZER INC-2013003329

PATIENT
  Age: 64 Year
  Sex: Female
  Weight: 70.75 kg

DRUGS (8)
  1. NICOTROL INHALER [Suspect]
     Indication: SMOKING CESSATION THERAPY
     Dosage: 4 MG, AS NEEDED
     Route: 055
     Dates: start: 2012
  2. NICOTROL INHALER [Suspect]
     Dosage: UNK
     Route: 055
  3. NICOTROL INHALER [Suspect]
     Dosage: UNK
     Route: 055
     Dates: end: 201301
  4. NICOTINE [Suspect]
     Dosage: UNK
  5. RAMIPRIL [Concomitant]
     Indication: HYPERTENSION
     Dosage: 10 MG, 2X/DAY
  6. PIOGLITAZONE HYDROCHLORIDE [Concomitant]
     Indication: DIABETES MELLITUS
     Dosage: 45 MG, 1X/DAY
  7. GLIPIZIDE [Concomitant]
     Indication: DIABETES MELLITUS
     Dosage: 10 MG, 1X/DAY
  8. FLUOXETINE HYDROCHLORIDE [Concomitant]
     Indication: NERVOUS SYSTEM DISORDER
     Dosage: 20 MG, 1X/DAY
     Route: 048

REACTIONS (4)
  - Physical product label issue [Unknown]
  - Wrong technique in drug usage process [Unknown]
  - Drug ineffective [Unknown]
  - Ageusia [Unknown]
